FAERS Safety Report 17619986 (Version 3)
Quarter: 2021Q3

REPORT INFORMATION
  Report Type: Spontaneous
  Country: US (occurrence: US)
  Receive Date: 20200403
  Receipt Date: 20210820
  Transmission Date: 20211014
  Serious: Yes (Death, Hospitalization, Other)
  Sender: FDA-Public Use
  Company Number: US-009507513-2004USA000885

PATIENT
  Sex: Male
  Weight: 73.11 kg

DRUGS (5)
  1. VICTOZA [Suspect]
     Active Substance: LIRAGLUTIDE
     Dosage: 0.6 MILLIGRAM, QD STRENGHT:: 18 MG/3 ML;
     Dates: start: 20130122, end: 201405
  2. JANUMET [Suspect]
     Active Substance: METFORMIN HYDROCHLORIDE\SITAGLIPTIN PHOSPHATE
     Dosage: 50/1000 MG, BID
     Route: 048
     Dates: start: 20120401, end: 201305
  3. JANUMET [Suspect]
     Active Substance: METFORMIN HYDROCHLORIDE\SITAGLIPTIN PHOSPHATE
     Dosage: 50/1000 MG, ONCE DAILY
     Route: 048
     Dates: start: 201305, end: 201405
  4. VICTOZA [Suspect]
     Active Substance: LIRAGLUTIDE
     Dosage: 1.2 MILLIGRAM, QD; STRENGHT:: 18 MG/3 ML;
     Dates: start: 201405, end: 201501
  5. VICTOZA [Suspect]
     Active Substance: LIRAGLUTIDE
     Dosage: 0.6 MILLIGRAM, QD; STRENGHT:: 18 MG/3 ML;
     Dates: start: 201501, end: 201606

REACTIONS (21)
  - Pancreatitis chronic [Not Recovered/Not Resolved]
  - Transaminases increased [Recovered/Resolved]
  - Renal cyst [Unknown]
  - Inappropriate schedule of product administration [Unknown]
  - Cholecystitis chronic [Unknown]
  - Hot flush [Unknown]
  - Blood glucose increased [Unknown]
  - Blood cholesterol increased [Unknown]
  - Chronic gastritis [Unknown]
  - Jaundice [Unknown]
  - Prostatomegaly [Unknown]
  - Pancreatic carcinoma [Fatal]
  - Hypokalaemia [Unknown]
  - Biliary obstruction [Recovering/Resolving]
  - Diverticulum intestinal [Unknown]
  - Anxiety [Unknown]
  - Insomnia [Unknown]
  - Depression [Unknown]
  - Vascular calcification [Unknown]
  - Chills [Unknown]
  - Intestinal cyst [Unknown]

NARRATIVE: CASE EVENT DATE: 201305
